FAERS Safety Report 5120270-4 (Version None)
Quarter: 2006Q3

REPORT INFORMATION
  Report Type: 
  Country: None (occurrence: None)
  Receive Date: 20060928
  Receipt Date: 20060918
  Transmission Date: 20061208
  Serious: Yes (Other)
  Sender: FDA-Public Use
  Company Number: 2006113214

PATIENT
  Sex: Male
  Weight: 60 kg

DRUGS (1)
  1. DIFLUCAN [Suspect]
     Dosage: 400 MG, INTRAVENOUS
     Route: 042

REACTIONS (1)
  - HALLUCINATION [None]
